FAERS Safety Report 8473533-9 (Version None)
Quarter: 2012Q2

REPORT INFORMATION
  Report Type: 
  Country: None (occurrence: None)
  Receive Date: 20120622
  Receipt Date: 20120622
  Transmission Date: 20120825
  Serious: No
  Sender: FDA-Public Use
  Company Number: None

PATIENT

DRUGS (2)
  1. HYDROMORPHONE HCL [Suspect]
     Dates: start: 20120516, end: 20120518
  2. GABAPENTIN [Suspect]
     Indication: PAIN
     Dosage: 300 MG TID PO
     Route: 048
     Dates: start: 20120517, end: 20120517

REACTIONS (7)
  - DELIRIUM [None]
  - HYPOXIA [None]
  - CONFUSIONAL STATE [None]
  - CONSTIPATION [None]
  - DISORIENTATION [None]
  - MENTAL STATUS CHANGES [None]
  - RESPIRATORY DEPRESSION [None]
